FAERS Safety Report 6173067-0 (Version None)
Quarter: 2009Q2

REPORT INFORMATION
  Report Type: 
  Country: None (occurrence: None)
  Receive Date: 20090428
  Receipt Date: 20090416
  Transmission Date: 20091009
  Serious: Yes (Other)
  Sender: FDA-Public Use
  Company Number: 2009AL002389

PATIENT
  Sex: Female

DRUGS (8)
  1. EPIRUBICIN HCL [Suspect]
     Indication: CHEMOTHERAPY
  2. CYCLOPHOSPHAMIDE [Concomitant]
  3. FLUOROURACIL [Concomitant]
  4. ANTIEMETICS AND ANTINAUSEANTS [Concomitant]
  5. PERIDOXINE [Concomitant]
  6. CREAM, UNSPECIFIED [Concomitant]
  7. MOUTH WASH [Concomitant]
  8. PYRIDOXINE [Concomitant]

REACTIONS (2)
  - DRUG HYPERSENSITIVITY [None]
  - INFUSION RELATED REACTION [None]
